FAERS Safety Report 24142415 (Version 4)
Quarter: 2025Q3

REPORT INFORMATION
  Report Type: Report from Study
  Country: US (occurrence: US)
  Receive Date: 20240726
  Receipt Date: 20250919
  Transmission Date: 20251021
  Serious: Yes (Hospitalization, Other)
  Sender: TAKEDA
  Company Number: US-TAKEDA-US202019763

PATIENT
  Sex: Female

DRUGS (2)
  1. HUMAN IMMUNOGLOBULIN G [Suspect]
     Active Substance: HUMAN IMMUNOGLOBULIN G
     Indication: Primary immunodeficiency syndrome
     Dosage: UNK UNK, Q3WEEKS
  2. HUMAN IMMUNOGLOBULIN G [Suspect]
     Active Substance: HUMAN IMMUNOGLOBULIN G

REACTIONS (20)
  - Sjogren^s syndrome [Unknown]
  - Intestinal haemorrhage [Unknown]
  - Cerebral haemorrhage [Unknown]
  - Pelvic fracture [Unknown]
  - Fall [Unknown]
  - Upper limb fracture [Unknown]
  - Gastrointestinal disorder [Not Recovered/Not Resolved]
  - Skin atrophy [Unknown]
  - Wrist fracture [Unknown]
  - Illness [Unknown]
  - Ear infection [Unknown]
  - Needle issue [Recovered/Resolved]
  - Nerve compression [Unknown]
  - Irritable bowel syndrome [Unknown]
  - Sinusitis [Unknown]
  - Blood pressure increased [Unknown]
  - Infusion site erythema [Unknown]
  - Infusion site swelling [Unknown]
  - Infusion site pruritus [Unknown]
  - Pyrexia [Unknown]
